FAERS Safety Report 22942879 (Version 7)
Quarter: 2024Q1

REPORT INFORMATION
  Report Type: Spontaneous
  Country: US (occurrence: US)
  Receive Date: 20230914
  Receipt Date: 20240112
  Transmission Date: 20240410
  Serious: No
  Sender: FDA-Public Use
  Company Number: US-Ipsen Biopharmaceuticals, Inc.-2023-21561

PATIENT
  Age: 59 Year
  Sex: Female
  Weight: 123.8 kg

DRUGS (9)
  1. TAZVERIK [Suspect]
     Active Substance: TAZEMETOSTAT HYDROBROMIDE
     Indication: Soft tissue sarcoma
     Dosage: 800 MG, TWICE A DAY FOR 28 DAYS
     Route: 048
     Dates: start: 202308
  2. LISINOPRIL [Concomitant]
     Active Substance: LISINOPRIL
     Route: 048
     Dates: start: 2020
  3. ALBUTEROL SULFATE [Concomitant]
     Active Substance: ALBUTEROL SULFATE
  4. IBUPROFEN [Concomitant]
     Active Substance: IBUPROFEN
     Route: 048
  5. CVS VITAMIN B12 [Concomitant]
     Dosage: 1000 MC
     Route: 048
  6. VITAMIN D3 [Concomitant]
     Active Substance: CHOLECALCIFEROL
     Dosage: 125 MCG(50
     Route: 048
  7. ZOFRAN [Concomitant]
     Active Substance: ONDANSETRON HYDROCHLORIDE
  8. HYDROCODONE BIT-HOMATROP MBR [Concomitant]
     Route: 048
  9. ROBITUSSIN (GUAIFENESIN) [Concomitant]
     Active Substance: GUAIFENESIN
     Route: 048

REACTIONS (8)
  - Nausea [Not Recovered/Not Resolved]
  - Fatigue [Unknown]
  - Glycosylated haemoglobin increased [Unknown]
  - Cough [Not Recovered/Not Resolved]
  - Blood phosphorus decreased [Unknown]
  - Hypertension [Unknown]
  - Weight decreased [Unknown]
  - Drug ineffective [Unknown]

NARRATIVE: CASE EVENT DATE: 20230701
